FAERS Safety Report 14497954 (Version 2)
Quarter: 2018Q1

REPORT INFORMATION
  Report Type: Spontaneous
  Country: CN (occurrence: CN)
  Receive Date: 20180207
  Receipt Date: 20180302
  Transmission Date: 20180509
  Serious: Yes (Other)
  Sender: FDA-Public Use
  Company Number: CN-BRACCO-2018CN00518

PATIENT
  Age: 61 Year
  Sex: Male

DRUGS (1)
  1. IOPAMIRO [Suspect]
     Active Substance: IOPAMIDOL
     Indication: ANGIOGRAM
     Dosage: 200 ML, SINGLE
     Route: 013
     Dates: start: 20180130, end: 20180130

REACTIONS (5)
  - Coma [Unknown]
  - Mydriasis [Unknown]
  - Vomiting [Unknown]
  - Cerebral artery occlusion [Unknown]
  - Nausea [Unknown]

NARRATIVE: CASE EVENT DATE: 20180130
